FAERS Safety Report 9404114 (Version 1)
Quarter: 2013Q3

REPORT INFORMATION
  Report Type: Spontaneous
  Country: US (occurrence: US)
  Receive Date: 20130717
  Receipt Date: 20130717
  Transmission Date: 20140515
  Serious: Yes (Other)
  Sender: FDA-Public Use
  Company Number: US-BANPHARM-20131474

PATIENT
  Age: 51 Year
  Sex: Female
  Weight: 68.49 kg

DRUGS (1)
  1. ALEVE LIQUID GELS 220 MG [Suspect]
     Dosage: 1 DF, BID,
     Route: 048
     Dates: start: 20130701

REACTIONS (1)
  - Vaginal haemorrhage [Not Recovered/Not Resolved]
